FAERS Safety Report 5755770-7 (Version None)
Quarter: 2008Q2

REPORT INFORMATION
  Report Type: 
  Country: None (occurrence: None)
  Receive Date: 20080530
  Receipt Date: 20080530
  Transmission Date: 20081010
  Serious: No
  Sender: FDA-Public Use
  Company Number: None

PATIENT
  Sex: Male

DRUGS (1)
  1. LITHOBID [Suspect]
     Dosage: 300MG BID

REACTIONS (1)
  - HOSPITALISATION [None]
